FAERS Safety Report 20112288 (Version 2)
Quarter: 2021Q4

REPORT INFORMATION
  Report Type: Other
  Country: GB (occurrence: GB)
  Receive Date: 20211125
  Receipt Date: 20211218
  Transmission Date: 20220303
  Serious: Yes (Death, Other)
  Sender: FDA-Public Use
  Company Number: GB-MACLEODS PHARMA UK LTD-MAC2021033236

PATIENT

DRUGS (14)
  1. TAMSULOSIN [Suspect]
     Active Substance: TAMSULOSIN
     Indication: Product used for unknown indication
     Dosage: 1 DOSAGE FORM, QD, DAILY
     Route: 065
     Dates: start: 20210219
  2. HYDROCORTISONE [Suspect]
     Active Substance: HYDROCORTISONE
     Indication: Product used for unknown indication
     Dosage: 1 DOSAGE FORM, BID; APPLY SPARINGLY TO THE AFFECTED AREA
     Route: 065
     Dates: start: 20211001
  3. OMEPRAZOLE [Suspect]
     Active Substance: OMEPRAZOLE
     Indication: Product used for unknown indication
     Dosage: 10 MILLIGRAM, QD, 350 MILLIGRAMS, GASTRO-RESISTANT CAPSULE
     Route: 048
     Dates: start: 20210910, end: 20211015
  4. ACETAMINOPHEN [Suspect]
     Active Substance: ACETAMINOPHEN
     Indication: Product used for unknown indication
     Dosage: 2 DOSAGE FORM, QID, (8 DOSAGE FORMS DAILY)
     Route: 065
     Dates: start: 20210122
  5. RAMIPRIL [Suspect]
     Active Substance: RAMIPRIL
     Indication: Blood pressure abnormal
     Dosage: 1 DOSAGE FORM, QD
     Route: 065
     Dates: start: 20201015
  6. CALCIUM CARBONATE\SODIUM ALGINATE\SODIUM BICARBONATE [Suspect]
     Active Substance: CALCIUM CARBONATE\SODIUM ALGINATE\SODIUM BICARBONATE
     Indication: Product used for unknown indication
     Dosage: 10 MILLILITER, QID
     Route: 048
     Dates: start: 20210910
  7. CHOLECALCIFEROL [Suspect]
     Active Substance: CHOLECALCIFEROL
     Indication: Product used for unknown indication
     Dosage: UNK; TO BE TAKEN EACH MORNING
     Route: 065
     Dates: start: 20210122
  8. DABIGATRAN ETEXILATE [Suspect]
     Active Substance: DABIGATRAN ETEXILATE
     Indication: Anticoagulant therapy
     Dosage: 1 DOSAGE FORM, BID; 1 DF, BID
     Route: 065
     Dates: start: 20211015
  9. DILTIAZEM [Suspect]
     Active Substance: DILTIAZEM
     Indication: Product used for unknown indication
     Dosage: 1 DOSAGE FORM, QD; 1 DF, DAILY, IN THE MORNING
     Route: 065
     Dates: start: 20201109
  10. ISOPROPYL MYRISTATE\PARAFFIN [Suspect]
     Active Substance: ISOPROPYL MYRISTATE\PARAFFIN
     Indication: Product used for unknown indication
     Dosage: 1 DOSAGE FORM, QD;  APPLY
     Route: 065
     Dates: start: 20200326
  11. FLUOROURACIL [Suspect]
     Active Substance: FLUOROURACIL
     Indication: Product used for unknown indication
     Dosage: 01 DOSAGE FORM, QD, APPLY ONCE TO TWICE DAILY FOR 3-4 WEEKS
     Route: 065
     Dates: start: 20211001
  12. NITROGLYCERIN [Suspect]
     Active Substance: NITROGLYCERIN
     Indication: Product used for unknown indication
     Dosage: 1 DOSAGE FORM, PUFF
     Route: 060
     Dates: start: 20200326
  13. BENZALKONIUM CHLORIDE\DIMETHICONE\HYDROCORTISONE\NYSTATIN [Suspect]
     Active Substance: BENZALKONIUM CHLORIDE\DIMETHICONE\HYDROCORTISONE\NYSTATIN
     Indication: Skin lesion
     Dosage: 1 DOSAGE FORM, TID, APPLY UNTIL THE LESIONS HAVE HEALED (3 DOSAGE FORM, DAILY)
     Route: 065
     Dates: start: 20210910, end: 20210924
  14. BENZALKONIUM CHLORIDE\DIMETHICONE\HYDROCORTISONE\NYSTATIN [Suspect]
     Active Substance: BENZALKONIUM CHLORIDE\DIMETHICONE\HYDROCORTISONE\NYSTATIN
     Dosage: 1 DOSAGE FORM, BID (1 DF, BID, APPLY SPARINGLY TO THE AFFECTED AREA)
     Route: 065

REACTIONS (2)
  - Death [Fatal]
  - Erythema multiforme [Fatal]

NARRATIVE: CASE EVENT DATE: 20211015
